FAERS Safety Report 4415927-4 (Version None)
Quarter: 2004Q3

REPORT INFORMATION
  Report Type: 
  Country: None (occurrence: None)
  Receive Date: 20040805
  Receipt Date: 20040616
  Transmission Date: 20050211
  Serious: No
  Sender: FDA-Public Use
  Company Number: US-GLAXOSMITHKLINE-A0514877A

PATIENT
  Sex: Female

DRUGS (3)
  1. AVANDAMET [Suspect]
     Route: 048
  2. LOTREL [Concomitant]
  3. CALCIUM [Concomitant]

REACTIONS (2)
  - MUSCLE CRAMP [None]
  - RESPIRATORY DISORDER [None]
